FAERS Safety Report 5573920-2 (Version None)
Quarter: 2007Q4

REPORT INFORMATION
  Report Type: 
  Country: None (occurrence: None)
  Receive Date: 20071220
  Receipt Date: 20071205
  Transmission Date: 20080405
  Serious: Yes (Death, Life-Threatening, Hospitalization)
  Sender: FDA-Public Use
  Company Number: 021432

PATIENT
  Age: 12 Year
  Sex: Male

DRUGS (19)
  1. DIAMOX(ACETAZOLAMIDE) TABLET [Suspect]
  2. ALBUTEROL SULFATE [Suspect]
     Indication: ASTHMA
     Dosage: INHALANT
     Route: 055
     Dates: start: 19960901
  3. FENTANYL [Suspect]
  4. IBUPROFEN [Suspect]
  5. LASIX [Suspect]
  6. PROVENTIL [Suspect]
     Indication: ASTHMA
     Dosage: INHALANT
     Route: 055
     Dates: start: 19970401
  7. SOLU-MEDROL [Suspect]
     Indication: ASTHMA
     Dates: start: 19970101
  8. TERBUTALINE SULFATE [Suspect]
     Dates: start: 19970101
  9. ATROVENT [Concomitant]
  10. AZMACORT [Concomitant]
  11. CEFTAZIDIME [Concomitant]
  12. DOBUTAMINE (DOBUTAMINE) [Concomitant]
  13. DOPAMINE HCL [Concomitant]
  14. EPINEPHRINE [Concomitant]
  15. NASACORT [Concomitant]
  16. OXACILLIN [Concomitant]
  17. PREDNISONE [Concomitant]
  18. RANITIDINE [Concomitant]
  19. SUCRALFATE [Concomitant]

REACTIONS (28)
  - BLOOD CALCIUM DECREASED [None]
  - BLOOD MAGNESIUM INCREASED [None]
  - BRONCHIAL SECRETION RETENTION [None]
  - CARDIOGENIC SHOCK [None]
  - DISSEMINATED INTRAVASCULAR COAGULATION [None]
  - DUODENAL ULCER HAEMORRHAGE [None]
  - EROSIVE DUODENITIS [None]
  - GASTRITIS [None]
  - GASTROINTESTINAL NECROSIS [None]
  - GENERAL PHYSICAL HEALTH DETERIORATION [None]
  - HAEMATOCRIT DECREASED [None]
  - HEPATIC FAILURE [None]
  - HEPATIC NECROSIS [None]
  - HYPOTENSION [None]
  - ILEUS PARALYTIC [None]
  - INCORRECT DOSE ADMINISTERED [None]
  - LACTIC ACIDOSIS [None]
  - MULTI-ORGAN FAILURE [None]
  - PERITONEAL HAEMORRHAGE [None]
  - PULMONARY HAEMORRHAGE [None]
  - RENAL FAILURE [None]
  - RENAL TUBULAR NECROSIS [None]
  - RESPIRATORY FAILURE [None]
  - RETROPERITONEAL HAEMORRHAGE [None]
  - SEPTIC SHOCK [None]
  - SINUSITIS [None]
  - STATUS ASTHMATICUS [None]
  - WHITE BLOOD CELL COUNT INCREASED [None]
